FAERS Safety Report 17775800 (Version 1)
Quarter: 2020Q2

REPORT INFORMATION
  Report Type: Spontaneous
  Country: GB (occurrence: GB)
  Receive Date: 20200513
  Receipt Date: 20200513
  Transmission Date: 20200714
  Serious: Yes (Disabling)
  Sender: FDA-Public Use
  Company Number: GB-BAYER-2020-074179

PATIENT
  Age: 47 Year
  Sex: Female
  Weight: 85.72 kg

DRUGS (1)
  1. CIPROXIN [Suspect]
     Active Substance: CIPROFLOXACIN
     Indication: URINARY TRACT INFECTION
     Dosage: UNK
     Route: 048
     Dates: start: 201703, end: 201703

REACTIONS (8)
  - Tendon pain [Not Recovered/Not Resolved]
  - Foot deformity [Unknown]
  - Pain [Not Recovered/Not Resolved]
  - Areflexia [Recovered/Resolved]
  - Peroneal nerve palsy [Unknown]
  - Myalgia [Not Recovered/Not Resolved]
  - Plantar fasciitis [Not Recovered/Not Resolved]
  - Tendonitis [Not Recovered/Not Resolved]

NARRATIVE: CASE EVENT DATE: 201703
